FAERS Safety Report 12631854 (Version 2)
Quarter: 2016Q3

REPORT INFORMATION
  Report Type: Spontaneous
  Country: US (occurrence: US)
  Receive Date: 20160808
  Receipt Date: 20160808
  Transmission Date: 20161109
  Serious: No
  Sender: FDA-Public Use
  Company Number: US-BEH-2016061234

PATIENT
  Sex: Female
  Weight: 128 kg

DRUGS (29)
  1. HIZENTRA [Suspect]
     Active Substance: HUMAN IMMUNOGLOBULIN G
     Indication: STATUS ASTHMATICUS
     Route: 058
  2. NORVASC [Concomitant]
     Active Substance: AMLODIPINE BESYLATE
  3. BENZONATATE. [Concomitant]
     Active Substance: BENZONATATE
  4. MEDROL [Concomitant]
     Active Substance: METHYLPREDNISOLONE
  5. LEVAQUIN [Concomitant]
     Active Substance: LEVOFLOXACIN
  6. VICODIN [Concomitant]
     Active Substance: ACETAMINOPHEN\HYDROCODONE BITARTRATE
  7. VALIUM [Concomitant]
     Active Substance: DIAZEPAM
  8. LEVEMIR [Concomitant]
     Active Substance: INSULIN DETEMIR
  9. OMEPRAZOLE. [Concomitant]
     Active Substance: OMEPRAZOLE
  10. IPRAT [Concomitant]
  11. NOVOLOG [Concomitant]
     Active Substance: INSULIN ASPART
  12. ACETAMINOPHEN. [Concomitant]
     Active Substance: ACETAMINOPHEN
  13. DIPHENHYDRAMINE. [Concomitant]
     Active Substance: DIPHENHYDRAMINE
  14. LIDOCAINE/PRILOCAINE [Concomitant]
     Active Substance: LIDOCAINE\PRILOCAINE
  15. EPIPEN [Concomitant]
     Active Substance: EPINEPHRINE
  16. OXYGEN. [Concomitant]
     Active Substance: OXYGEN
  17. PROVENTIL [Concomitant]
     Active Substance: ALBUTEROL
  18. FENOFIBRATE. [Concomitant]
     Active Substance: FENOFIBRATE
  19. CRESTOR [Concomitant]
     Active Substance: ROSUVASTATIN CALCIUM
  20. MULTIVITAMINS [Concomitant]
     Active Substance: VITAMINS
  21. HIZENTRA [Suspect]
     Active Substance: HUMAN IMMUNOGLOBULIN G
     Indication: IMMUNODEFICIENCY COMMON VARIABLE
     Route: 058
     Dates: start: 20130319
  22. CIPROFLOXACIN. [Concomitant]
     Active Substance: CIPROFLOXACIN
  23. PENICILLIN [Concomitant]
     Active Substance: PENICILLIN
  24. BUSPIRONE [Concomitant]
     Active Substance: BUSPIRONE HYDROCHLORIDE
  25. GLIMEPIRID [Concomitant]
     Active Substance: GLIMEPIRIDE
  26. HIZENTRA [Suspect]
     Active Substance: HUMAN IMMUNOGLOBULIN G
     Route: 058
  27. ASPIRIN. [Concomitant]
     Active Substance: ASPIRIN
  28. SINGULAIR [Concomitant]
     Active Substance: MONTELUKAST SODIUM
  29. ALEVE [Concomitant]
     Active Substance: NAPROXEN SODIUM

REACTIONS (1)
  - Bronchitis [Unknown]
